FAERS Safety Report 9693193 (Version 2)
Quarter: 2013Q4

REPORT INFORMATION
  Report Type: Report from Study
  Country: US (occurrence: US)
  Receive Date: 20131118
  Receipt Date: 20131118
  Transmission Date: 20140711
  Serious: Yes (Hospitalization, Other)
  Sender: FDA-Public Use
  Company Number: US-MILLENNIUM PHARMACEUTICALS, INC.-2013TUS001735

PATIENT
  Age: 74 Year
  Sex: Male
  Weight: 94 kg

DRUGS (11)
  1. BLINDED ALLOPURINOL [Suspect]
     Indication: HYPERURICAEMIA
     Dosage: UNK, QD
     Route: 048
     Dates: start: 20110425
  2. BLINDED FEBUXOSTAT [Suspect]
     Indication: HYPERURICAEMIA
     Dosage: UNK, QD
     Route: 048
     Dates: start: 20110425
  3. PLAVIX [Concomitant]
     Indication: ANTICOAGULANT THERAPY
     Dosage: 75 MG, QD
     Route: 048
     Dates: start: 2006
  4. CRESTOR [Concomitant]
     Indication: HYPERCHOLESTEROLAEMIA
     Dosage: 10 MG, QD
     Route: 048
     Dates: start: 2007
  5. ALBUTEROL                          /00139501/ [Concomitant]
     Indication: CHRONIC OBSTRUCTIVE PULMONARY DISEASE
     Dosage: 90 ?G, TID PRN
     Route: 050
     Dates: start: 2006
  6. SPIRIVA [Concomitant]
     Indication: CHRONIC OBSTRUCTIVE PULMONARY DISEASE
     Dosage: 18 ?G, 2 PUFFS QD
     Route: 050
     Dates: start: 2005
  7. ADVAIR [Concomitant]
     Indication: CHRONIC OBSTRUCTIVE PULMONARY DISEASE
     Dosage: 500/50 ?G, BID
     Route: 050
     Dates: start: 2006
  8. ARTIFICIAL TEARS                   /00445101/ [Concomitant]
     Indication: CATARACT
     Dosage: 2 GTT, PRN
     Route: 047
     Dates: start: 20111004
  9. OXYGEN [Concomitant]
     Indication: CHRONIC OBSTRUCTIVE PULMONARY DISEASE
     Dosage: 2 L,PRN AT NIGHT
     Route: 050
     Dates: start: 1998
  10. NITROGLYCERIN [Concomitant]
     Indication: ANGINA PECTORIS
     Dosage: 1 DF, PRN
     Route: 060
     Dates: start: 1999
  11. FUROSEMIDE [Concomitant]
     Indication: OEDEMA PERIPHERAL
     Dosage: 20 MG, QD
     Route: 048
     Dates: start: 20130422

REACTIONS (4)
  - Supraventricular tachycardia [Unknown]
  - Chronic obstructive pulmonary disease [Recovered/Resolved]
  - Cardiac failure congestive [Recovered/Resolved with Sequelae]
  - Acute myocardial infarction [Recovered/Resolved]
